FAERS Safety Report 8597465-0 (Version None)
Quarter: 2012Q3

REPORT INFORMATION
  Report Type: 
  Country: None (occurrence: None)
  Receive Date: 20120816
  Receipt Date: 20120719
  Transmission Date: 20120928
  Serious: Yes (Hospitalization)
  Sender: FDA-Public Use
  Company Number: AU-BAYER-2012-082302

PATIENT
  Age: 57 Year
  Sex: Male

DRUGS (1)
  1. NAPROXEN SODIUM [Suspect]
     Indication: OSTEOARTHRITIS
     Dosage: 2 DF, UNK
     Route: 048
     Dates: end: 20120116

REACTIONS (1)
  - GASTROINTESTINAL HAEMORRHAGE [None]
